FAERS Safety Report 19032236 (Version 1)
Quarter: 2021Q1

REPORT INFORMATION
  Report Type: Spontaneous
  Country: BR (occurrence: BR)
  Receive Date: 20210319
  Receipt Date: 20210319
  Transmission Date: 20210420
  Serious: Yes (Death, Hospitalization, Other)
  Sender: FDA-Public Use
  Company Number: NVSC2021BR062618

PATIENT
  Age: 82 Year
  Sex: Female
  Weight: 75.4 kg

DRUGS (5)
  1. RESTIVA [Concomitant]
     Active Substance: BUPRENORPHINE
     Indication: ABDOMINAL PAIN
     Dosage: UNK
     Route: 048
     Dates: start: 202006
  2. RIVOTRIL [Concomitant]
     Active Substance: CLONAZEPAM
     Indication: INSOMNIA
     Dosage: UNK
     Route: 048
     Dates: start: 2018
  3. SELOZOK [Concomitant]
     Active Substance: METOPROLOL SUCCINATE
     Indication: HYPERTENSION
     Dosage: UNK
     Route: 048
     Dates: start: 2016
  4. PALBOCICLIB [Suspect]
     Active Substance: PALBOCICLIB
     Indication: PRODUCT USED FOR UNKNOWN INDICATION
     Dosage: 125 MG, QD
     Route: 065
     Dates: start: 20201023
  5. LETROZOLE. [Suspect]
     Active Substance: LETROZOLE
     Indication: PRODUCT USED FOR UNKNOWN INDICATION
     Dosage: 2.5 MG, QD
     Route: 065
     Dates: start: 20201023

REACTIONS (11)
  - Dyspnoea [Recovered/Resolved with Sequelae]
  - Renal impairment [Unknown]
  - Ascites [Unknown]
  - Blood creatinine increased [Unknown]
  - Renal failure [Fatal]
  - Abdominal infection [Unknown]
  - Acute kidney injury [Unknown]
  - Intestinal obstruction [Unknown]
  - Metastases to peritoneum [Unknown]
  - Lymphadenopathy [Unknown]
  - Pleural effusion [Unknown]

NARRATIVE: CASE EVENT DATE: 20201202
